FAERS Safety Report 12674342 (Version 1)
Quarter: 2016Q3

REPORT INFORMATION
  Report Type: Spontaneous
  Country: US (occurrence: US)
  Receive Date: 20160822
  Receipt Date: 20160822
  Transmission Date: 20161109
  Serious: No
  Sender: FDA-Public Use
  Company Number: US-FRI-1000083001

PATIENT
  Sex: Female

DRUGS (2)
  1. OTHER CONCOMITANT MEDICATIONS [Suspect]
     Active Substance: UNSPECIFIED INGREDIENT
  2. SAPHRIS [Suspect]
     Active Substance: ASENAPINE MALEATE
     Dosage: 10MG, 2 TABLETS AT BEDTIME
     Route: 048

REACTIONS (5)
  - Dry mouth [Not Recovered/Not Resolved]
  - Intentional product misuse [Not Recovered/Not Resolved]
  - Oral discomfort [Unknown]
  - Off label use [Not Recovered/Not Resolved]
  - Aptyalism [Unknown]
